FAERS Safety Report 20634317 (Version 1)
Quarter: 2022Q1

REPORT INFORMATION
  Report Type: Spontaneous
  Country: GB (occurrence: GB)
  Receive Date: 20220325
  Receipt Date: 20220325
  Transmission Date: 20220423
  Serious: Yes (Other)
  Sender: FDA-Public Use
  Company Number: GB-ABBVIE-22K-167-4329025-00

PATIENT
  Sex: Female

DRUGS (6)
  1. EPILIM [Suspect]
     Active Substance: VALPROATE SODIUM
     Indication: Product used for unknown indication
     Route: 065
     Dates: end: 201905
  2. EPILIM [Suspect]
     Active Substance: VALPROATE SODIUM
     Dosage: 1000 MG, BID AS 2X200 MG AND 2X300 MG IN MORNING AND SAME DOSE IN EVENING
     Route: 065
     Dates: start: 201905
  3. EPILIM [Suspect]
     Active Substance: VALPROATE SODIUM
     Route: 065
  4. EPILIM [Suspect]
     Active Substance: VALPROATE SODIUM
     Route: 065
  5. LAMICTAL [Concomitant]
     Active Substance: LAMOTRIGINE
     Indication: Product used for unknown indication
  6. CLONAZEPAM [Concomitant]
     Active Substance: CLONAZEPAM
     Indication: Product used for unknown indication

REACTIONS (9)
  - Partial seizures [Unknown]
  - Hunger [Unknown]
  - Hair texture abnormal [Unknown]
  - Intentional product use issue [Unknown]
  - Incorrect dose administered [Unknown]
  - Weight increased [Unknown]
  - Alopecia [Unknown]
  - Product packaging issue [Unknown]
  - Product colour issue [Unknown]
